FAERS Safety Report 5962050-3 (Version None)
Quarter: 2008Q4

REPORT INFORMATION
  Report Type: 
  Country: None (occurrence: None)
  Receive Date: 20081121
  Receipt Date: 20081111
  Transmission Date: 20090506
  Serious: Yes (Other)
  Sender: FDA-Public Use
  Company Number: PHHY2008US19951

PATIENT
  Sex: Female
  Weight: 118 kg

DRUGS (7)
  1. EXJADE [Suspect]
     Indication: IRON OVERLOAD
     Dosage: 2000 MG, QD
     Route: 048
     Dates: start: 20080823, end: 20080828
  2. DANAZOL [Concomitant]
     Indication: MYELOFIBROSIS
     Dosage: 200 MG, BID
     Route: 048
  3. PROPRANOLOL [Concomitant]
     Dosage: 40 MG, BID
     Route: 048
  4. EFFEXOR XR [Concomitant]
     Indication: DEPRESSION
     Dosage: 150 MG, QD
     Route: 048
  5. WARFARIN SODIUM [Concomitant]
     Dosage: 5 MG, QD
     Route: 048
  6. CALCIUM WITH VITAMIN D [Concomitant]
     Route: 048
  7. PROTEIN SUPPLEMENTS [Concomitant]
     Route: 048

REACTIONS (6)
  - ACTIVATED PARTIAL THROMBOPLASTIN TIME PROLONGED [None]
  - BACK PAIN [None]
  - CHROMATURIA [None]
  - HAPTOGLOBIN INCREASED [None]
  - PROTHROMBIN TIME PROLONGED [None]
  - RENAL PAIN [None]
